FAERS Safety Report 8454174-6 (Version None)
Quarter: 2012Q2

REPORT INFORMATION
  Report Type: 
  Country: None (occurrence: None)
  Receive Date: 20120620
  Receipt Date: 20120615
  Transmission Date: 20120825
  Serious: Yes (Hospitalization)
  Sender: FDA-Public Use
  Company Number: DE-ROCHE-1060280

PATIENT
  Sex: Male

DRUGS (4)
  1. BENDAMUSTINE HYDROCHLORIDE [Suspect]
     Indication: LYMPHOPLASMACYTOID LYMPHOMA/IMMUNOCYTOMA
     Dosage: LAST DOSE PRIOR TO SAE ON 03/FEB/2011
     Route: 042
     Dates: start: 20100902
  2. MABTHERA [Suspect]
     Indication: LYMPHOPLASMACYTOID LYMPHOMA/IMMUNOCYTOMA
     Dosage: LAST DOSE PRIOR TO SAE 13/FEB/2012
     Route: 042
     Dates: start: 20100831
  3. MABTHERA [Suspect]
     Dates: start: 20120213, end: 20120213
  4. COTRIM DS [Concomitant]

REACTIONS (1)
  - NECROTISING ULCERATIVE GINGIVOSTOMATITIS [None]
